FAERS Safety Report 7364671-2 (Version None)
Quarter: 2011Q1

REPORT INFORMATION
  Report Type: 
  Country: None (occurrence: None)
  Receive Date: 20110321
  Receipt Date: 20110222
  Transmission Date: 20110831
  Serious: No
  Sender: FDA-Public Use
  Company Number: US-BAYER-2011-017715

PATIENT
  Sex: Female
  Weight: 79 kg

DRUGS (2)
  1. IBUPROFEN [Concomitant]
  2. ALEVE (CAPLET) [Suspect]
     Indication: ARTHRITIS
     Dosage: 220 MG, BID
     Route: 048
     Dates: start: 20110219, end: 20110219

REACTIONS (1)
  - ARTHRITIS [None]
